FAERS Safety Report 5845271-X (Version None)
Quarter: 2008Q3

REPORT INFORMATION
  Report Type: 
  Country: None (occurrence: None)
  Receive Date: 20080731
  Receipt Date: 20080423
  Transmission Date: 20090109
  Serious: No
  Sender: FDA-Public Use
  Company Number: US200804006174

PATIENT
  Age: 65 Year
  Sex: Female
  Weight: 111.1 kg

DRUGS (17)
  1. BYETTA [Suspect]
     Indication: TYPE 2 DIABETES MELLITUS
     Dosage: 5 UG, 2/D, SUBCUTANEOUS; 10 UG, 2/D, SUBCUTANEOUS
     Route: 058
     Dates: start: 20080301, end: 20080418
  2. BYETTA [Suspect]
     Indication: TYPE 2 DIABETES MELLITUS
     Dosage: 5 UG, 2/D, SUBCUTANEOUS; 10 UG, 2/D, SUBCUTANEOUS
     Route: 058
     Dates: start: 20080419
  3. EXENATIDE 5MCG PEN, DISPOSABLE DEVICE (EXENATIDE PEN (5MCG)) PEN,DISPO [Concomitant]
  4. EXENATIDE 5MCG PEN, DISPOSABLE DEVICE (EXENATIDE PEN (5MCG)) PEN,DISPO [Concomitant]
  5. ACTOS /USA/ (PIOGLITAZONE HYDROCHLORIDE) [Concomitant]
  6. PERCOCET [Concomitant]
  7. METHADONE HCL [Concomitant]
  8. PRAVACHOL [Concomitant]
  9. EFFEXOR XR [Concomitant]
  10. ALBUTEROL [Concomitant]
  11. NEXIUM [Concomitant]
  12. LOTREL [Concomitant]
  13. ALLOPURINOL [Concomitant]
  14. VITAMIN D [Concomitant]
  15. CALCIUM (CALCIUM) [Concomitant]
  16. STOOL SOFTENER (DOCUSATE SODIUM) [Concomitant]
  17. MULTIVITAMIN [Concomitant]

REACTIONS (3)
  - ANOREXIA [None]
  - SOMNOLENCE [None]
  - WEIGHT DECREASED [None]
